FAERS Safety Report 9519421 (Version 1)
Quarter: 2013Q3

REPORT INFORMATION
  Report Type: Spontaneous
  Country: US (occurrence: US)
  Receive Date: 20130912
  Receipt Date: 20130912
  Transmission Date: 20140515
  Serious: Yes (Death)
  Sender: FDA-Public Use
  Company Number: US-GLAXOSMITHKLINE-A1040857A

PATIENT
  Sex: Male

DRUGS (2)
  1. ADVAIR [Suspect]
     Indication: PRODUCT USED FOR UNKNOWN INDICATION
  2. NO CONCURRENT MEDICATION [Concomitant]

REACTIONS (2)
  - Myocardial infarction [Fatal]
  - Drug ineffective [Unknown]
